FAERS Safety Report 7513427-6 (Version None)
Quarter: 2011Q2

REPORT INFORMATION
  Report Type: 
  Country: None (occurrence: None)
  Receive Date: 20110531
  Receipt Date: 20110406
  Transmission Date: 20111010
  Serious: Yes (Other)
  Sender: FDA-Public Use
  Company Number: US-BAYER-201040921NA

PATIENT
  Age: 23 Year
  Sex: Female
  Weight: 79.365 kg

DRUGS (2)
  1. YAZ [Suspect]
     Indication: ORAL CONTRACEPTION
     Dosage: UNK
     Route: 048
     Dates: start: 20080411, end: 20081211
  2. PRILOSEC [Concomitant]
     Indication: GASTROOESOPHAGEAL REFLUX DISEASE
     Dosage: UNK
     Dates: start: 20081101

REACTIONS (2)
  - CHOLECYSTITIS CHRONIC [None]
  - ABDOMINAL PAIN UPPER [None]
